FAERS Safety Report 8916166 (Version 4)
Quarter: 2013Q1

REPORT INFORMATION
  Report Type: Spontaneous
  Country: US (occurrence: US)
  Receive Date: 20121120
  Receipt Date: 20130228
  Transmission Date: 20140127
  Serious: Yes (Other)
  Sender: FDA-Public Use
  Company Number: US-GLAXOSMITHKLINE-A1001330A

PATIENT
  Age: 64 Year
  Sex: Male

DRUGS (16)
  1. SEREVENT [Suspect]
     Indication: CHRONIC OBSTRUCTIVE PULMONARY DISEASE
     Dosage: 1PUFF TWICE PER DAY
     Route: 055
     Dates: start: 201106, end: 201107
  2. PROAIR HFA [Concomitant]
  3. SPIRIVA [Concomitant]
  4. THEOPHYLLINE [Concomitant]
  5. NIFEDIPINE [Concomitant]
  6. LISINOPRIL [Concomitant]
  7. TEGRETOL [Concomitant]
  8. WELLBUTRIN SR [Concomitant]
  9. CLONAZEPAM [Concomitant]
  10. LAMICTAL [Concomitant]
  11. PANTOPRAZOLE [Concomitant]
  12. CRESTOR [Concomitant]
  13. PLAVIX [Concomitant]
  14. ASPIRIN [Concomitant]
  15. ASMANEX [Concomitant]
  16. ADVAIR [Concomitant]
     Route: 055

REACTIONS (3)
  - Candida infection [Recovered/Resolved]
  - Impaired work ability [Recovered/Resolved]
  - Drug ineffective [Unknown]
